FAERS Safety Report 17200008 (Version 1)
Quarter: 2019Q4

REPORT INFORMATION
  Report Type: Spontaneous
  Country: US (occurrence: US)
  Receive Date: 20191226
  Receipt Date: 20191226
  Transmission Date: 20200122
  Serious: Yes (Death)
  Sender: FDA-Public Use
  Company Number: US-BAXTER-2019BAX026116

PATIENT
  Age: 64 Year
  Sex: Male
  Weight: 82.3 kg

DRUGS (1)
  1. LIDOCAINE HYDROCHLORIDE AND 5% DEXTROSE INJECTION, USP [Suspect]
     Active Substance: LIDOCAINE HYDROCHLORIDE
     Indication: ARRHYTHMIA
     Dosage: CENTRAL IV
     Route: 042
     Dates: start: 20190311, end: 20190411

REACTIONS (3)
  - Cardiac arrest [Fatal]
  - Toxicity to various agents [Fatal]
  - Misleading laboratory test result [Unknown]

NARRATIVE: CASE EVENT DATE: 20190411
